FAERS Safety Report 17333933 (Version 4)
Quarter: 2021Q1

REPORT INFORMATION
  Report Type: Spontaneous
  Country: JP (occurrence: JP)
  Receive Date: 20200128
  Receipt Date: 20210125
  Transmission Date: 20210419
  Serious: Yes (Hospitalization, Other)
  Sender: FDA-Public Use
  Company Number: JP-AMGEN-JPNSP2020013626

PATIENT
  Age: 66 Year
  Sex: Female
  Weight: 66 kg

DRUGS (13)
  1. KYPROLIS [Suspect]
     Active Substance: CARFILZOMIB
     Dosage: 35 MILLIGRAM, ADMINISTERED TWICE?WEEKLY FOR 2 CONSECUTIVE DAYS
     Route: 041
  2. KYPROLIS [Suspect]
     Active Substance: CARFILZOMIB
     Dosage: 70 MILLIGRAM, QWK
     Route: 041
  3. RANMARK [Suspect]
     Active Substance: DENOSUMAB
     Indication: PRODUCT USED FOR UNKNOWN INDICATION
     Dosage: UNK
     Route: 065
     Dates: end: 20200116
  4. ZOMETA [Suspect]
     Active Substance: ZOLEDRONIC ACID
     Indication: PRODUCT USED FOR UNKNOWN INDICATION
     Dosage: UNK
     Route: 065
     Dates: end: 20200116
  5. DEXAMETHASONE. [Suspect]
     Active Substance: DEXAMETHASONE
     Dosage: UNK UNK, QW
     Route: 048
  6. REVLIMID [Concomitant]
     Active Substance: LENALIDOMIDE
     Dosage: 1 DOSAGE FORM
     Route: 048
  7. KYPROLIS [Suspect]
     Active Substance: CARFILZOMIB
     Indication: PLASMA CELL MYELOMA
     Dosage: UNK UNK, 2 TIMES/WK (CONSECUTIVE DAYS)
     Route: 041
  8. TAKEPRON [Concomitant]
     Active Substance: LANSOPRAZOLE
     Dosage: UNK
     Route: 048
  9. REVLIMID [Concomitant]
     Active Substance: LENALIDOMIDE
     Dosage: 2 DOSAGE FORM
     Route: 048
  10. KYPROLIS [Suspect]
     Active Substance: CARFILZOMIB
     Dosage: UNK UNK, 2 TIMES/WK, FREQUENCY: TWICE A WEEK (1ST DOSE, 35 MG; 2ND DOSE, 40 MG)
     Route: 041
  11. KYPROLIS [Suspect]
     Active Substance: CARFILZOMIB
     Dosage: 85 MILLIGRAM, QWK
     Route: 041
  12. DEXAMETHASONE. [Suspect]
     Active Substance: DEXAMETHASONE
     Indication: PLASMA CELL MYELOMA
     Dosage: 20 MILLIGRAM
     Route: 048
  13. REVLIMID [Concomitant]
     Active Substance: LENALIDOMIDE
     Indication: PLASMA CELL MYELOMA
     Dosage: 3 DOSAGE FORM
     Route: 048

REACTIONS (15)
  - Atypical femur fracture [Unknown]
  - Erythema of eyelid [Unknown]
  - Flushing [Unknown]
  - Physical deconditioning [Unknown]
  - Dizziness [Unknown]
  - Cardiac discomfort [Unknown]
  - Pain in extremity [Unknown]
  - Blood pressure increased [Unknown]
  - Headache [Unknown]
  - Seizure [Unknown]
  - Hypoaesthesia [Unknown]
  - Headache [Unknown]
  - Feeling abnormal [Unknown]
  - Hot flush [Unknown]
  - Hypoaesthesia [Unknown]

NARRATIVE: CASE EVENT DATE: 201912
